FAERS Safety Report 4754865-4 (Version None)
Quarter: 2005Q3

REPORT INFORMATION
  Report Type: 
  Country: None (occurrence: None)
  Receive Date: 20050829
  Receipt Date: 20050414
  Transmission Date: 20060218
  Serious: Yes (Other)
  Sender: FDA-Public Use
  Company Number: US-MERCK-0504USA02815

PATIENT
  Sex: Male
  Weight: 91 kg

DRUGS (8)
  1. VIOXX [Suspect]
     Indication: LIMB INJURY
     Route: 048
  2. VIOXX [Suspect]
     Route: 048
     Dates: end: 20040101
  3. VIOXX [Suspect]
     Indication: ARTHRITIS
     Route: 048
  4. VIOXX [Suspect]
     Route: 048
     Dates: end: 20040101
  5. CELEXA [Concomitant]
     Route: 065
  6. ZOCOR [Concomitant]
     Route: 065
  7. PROTONIX [Concomitant]
     Route: 065
  8. AMBIEN [Concomitant]
     Indication: INSOMNIA
     Route: 065

REACTIONS (5)
  - BARRETT'S OESOPHAGUS [None]
  - CHRONIC FATIGUE SYNDROME [None]
  - CORONARY ARTERY OCCLUSION [None]
  - DRUG HYPERSENSITIVITY [None]
  - MYOCARDIAL INFARCTION [None]
